FAERS Safety Report 7946844-0 (Version None)
Quarter: 2011Q4

REPORT INFORMATION
  Report Type: 
  Country: None (occurrence: None)
  Receive Date: 20111129
  Receipt Date: 20111121
  Transmission Date: 20120403
  Serious: Yes (Hospitalization)
  Sender: FDA-Public Use
  Company Number: IT-ASTRAZENECA-2011SE69364

PATIENT
  Age: 60 Year
  Sex: Male

DRUGS (3)
  1. PRAZEPAM [Concomitant]
     Route: 048
     Dates: start: 20050910, end: 20111118
  2. RAMIPRIL [Concomitant]
     Route: 048
     Dates: start: 20100717, end: 20111118
  3. IRESSA [Suspect]
     Indication: NON-SMALL CELL LUNG CANCER
     Route: 048
     Dates: start: 20110729, end: 20111028

REACTIONS (1)
  - REVERSIBLE ISCHAEMIC NEUROLOGICAL DEFICIT [None]
